FAERS Safety Report 5975216 (Version 3)
Quarter: 2012Q4

REPORT INFORMATION
  Report Type: 
  Country: US (occurrence: US)
  Receive Date: 20060202
  Receipt Date: 20121116
  Transmission Date: 20130627
  Serious: Yes (Hospitalization, Other)
  Sender: FDA-Public Use
  Company Number: US-ABBOTT-06P-163-0323458-00

PATIENT
  Age: 25 Year
  Sex: Female

DRUGS (7)
  1. VALPROIC ACID [Suspect]
     Indication: OVERDOSE
     Dosage: Overdose
     Route: 048
  2. VALPROIC ACID [Suspect]
     Indication: DEPRESSION
  3. VALPROIC ACID [Suspect]
     Indication: ALCOHOLISM
  4. DOXEPIN [Suspect]
     Indication: PRODUCT USED FOR UNKNOWN INDICATION
     Route: 048
  5. ALCOHOL [Suspect]
     Indication: PRODUCT USED FOR UNKNOWN INDICATION
  6. FLUOXETINE [Concomitant]
     Indication: DEPRESSION
  7. FLUOXETINE [Concomitant]
     Indication: ALCOHOLISM

REACTIONS (15)
  - Intentional drug misuse [Recovered/Resolved]
  - Lactic acidosis [Recovered/Resolved]
  - Overdose [Recovered/Resolved]
  - Hypotension [Recovered/Resolved]
  - Thrombocytopenia [Recovered/Resolved]
  - Coma [Recovered/Resolved]
  - Drug level increased [Recovered/Resolved]
  - Respiratory distress [Recovered/Resolved]
  - Areflexia [Recovered/Resolved]
  - Aggression [Recovered/Resolved]
  - Macrocytosis [Recovered/Resolved]
  - Sinus tachycardia [Recovered/Resolved]
  - Blood sodium increased [Recovered/Resolved]
  - Metabolic acidosis [Recovered/Resolved]
  - Anion gap decreased [Recovered/Resolved]
